FAERS Safety Report 14676027 (Version 2)
Quarter: 2018Q2

REPORT INFORMATION
  Report Type: Report from Study
  Country: US (occurrence: US)
  Receive Date: 20180323
  Receipt Date: 20180504
  Transmission Date: 20180711
  Serious: No
  Sender: FDA-Public Use
  Company Number: PHEH2018US011239

PATIENT
  Sex: Male

DRUGS (1)
  1. COSENTYX [Suspect]
     Active Substance: SECUKINUMAB
     Indication: PRODUCT USED FOR UNKNOWN INDICATION
     Route: 058

REACTIONS (6)
  - Pharyngeal disorder [Unknown]
  - Oral disorder [Unknown]
  - Sensory disturbance [Unknown]
  - Tongue disorder [Unknown]
  - Head discomfort [Unknown]
  - Ear disorder [Unknown]
